FAERS Safety Report 14723521 (Version 2)
Quarter: 2018Q4

REPORT INFORMATION
  Report Type: Spontaneous
  Country: US (occurrence: US)
  Receive Date: 20180405
  Receipt Date: 20181219
  Transmission Date: 20190204
  Serious: Yes (Hospitalization, Other)
  Sender: FDA-Public Use
  Company Number: US-ASTRAZENECA-2018SE40470

PATIENT
  Age: 17029 Day
  Sex: Female
  Weight: 127 kg

DRUGS (41)
  1. NEXIUM [Suspect]
     Active Substance: ESOMEPRAZOLE MAGNESIUM
     Indication: GASTROOESOPHAGEAL REFLUX DISEASE
     Route: 048
     Dates: start: 20070706
  2. DEXILANT [Suspect]
     Active Substance: DEXLANSOPRAZOLE
     Indication: GASTROOESOPHAGEAL REFLUX DISEASE
     Route: 065
     Dates: start: 20120905, end: 20160406
  3. ACETAMINOPHEN. [Concomitant]
     Active Substance: ACETAMINOPHEN
     Indication: PAIN
     Route: 065
     Dates: start: 2008
  4. SULFAMETHOXAZOLE [Concomitant]
     Active Substance: SULFAMETHOXAZOLE
     Route: 065
     Dates: start: 20081015
  5. VYVANSE [Concomitant]
     Active Substance: LISDEXAMFETAMINE DIMESYLATE
     Route: 065
     Dates: start: 20121025
  6. GABAPENTIN. [Concomitant]
     Active Substance: GABAPENTIN
     Route: 065
     Dates: start: 20130218
  7. NASONEX [Concomitant]
     Active Substance: MOMETASONE FUROATE
     Route: 065
     Dates: start: 20130603
  8. NEXIUM [Suspect]
     Active Substance: ESOMEPRAZOLE MAGNESIUM
     Indication: GASTROOESOPHAGEAL REFLUX DISEASE
     Route: 048
     Dates: start: 20070706, end: 20101215
  9. NEXIUM 24HR [Suspect]
     Active Substance: ESOMEPRAZOLE MAGNESIUM
     Route: 048
     Dates: start: 199701, end: 201705
  10. PROTONIX [Suspect]
     Active Substance: PANTOPRAZOLE SODIUM
     Indication: GASTROOESOPHAGEAL REFLUX DISEASE
     Dosage: GENERIC
     Route: 065
     Dates: start: 20120828, end: 20130422
  11. DEXILANT [Suspect]
     Active Substance: DEXLANSOPRAZOLE
     Indication: GASTROOESOPHAGEAL REFLUX DISEASE
     Route: 065
     Dates: start: 199701, end: 201705
  12. BENICAR [Concomitant]
     Active Substance: OLMESARTAN MEDOXOMIL
     Indication: HYPERTENSION
     Route: 065
     Dates: start: 20070717, end: 20170123
  13. FUROSEMIDE. [Concomitant]
     Active Substance: FUROSEMIDE
     Indication: OEDEMA
     Route: 065
     Dates: start: 20150922, end: 20160823
  14. DESIPRAMINE [Concomitant]
     Active Substance: DESIPRAMINE
     Route: 065
     Dates: start: 20140319
  15. NAPROXEN. [Concomitant]
     Active Substance: NAPROXEN
     Indication: PAIN
     Route: 065
     Dates: start: 2012
  16. ZANTAC [Concomitant]
     Active Substance: RANITIDINE HYDROCHLORIDE
     Route: 065
     Dates: start: 20130820
  17. TRAMADOL. [Concomitant]
     Active Substance: TRAMADOL
     Indication: OSTEOARTHRITIS
     Route: 065
     Dates: start: 20100610, end: 20170510
  18. MELOXICAM. [Concomitant]
     Active Substance: MELOXICAM
     Indication: PAIN
     Route: 065
     Dates: start: 20110909, end: 20140401
  19. VITAMIN D [Concomitant]
     Active Substance: CHOLECALCIFEROL
     Indication: BLOOD CALCIUM
     Route: 065
     Dates: start: 2015
  20. FLUTICASONE. [Concomitant]
     Active Substance: FLUTICASONE
     Route: 065
     Dates: start: 20081015
  21. PRILOSEC [Suspect]
     Active Substance: OMEPRAZOLE MAGNESIUM
     Indication: GASTROOESOPHAGEAL REFLUX DISEASE
     Dosage: GENERIC
     Route: 065
     Dates: start: 20170106
  22. PROTONIX [Suspect]
     Active Substance: PANTOPRAZOLE SODIUM
     Indication: GASTROOESOPHAGEAL REFLUX DISEASE
     Route: 065
     Dates: start: 199701, end: 201705
  23. DICLOFENAC [Concomitant]
     Active Substance: DICLOFENAC
     Indication: PAIN
     Route: 065
     Dates: start: 20080603, end: 20140528
  24. CEFALEXIN [Concomitant]
     Active Substance: CEPHALEXIN
     Indication: BACTERIAL INFECTION
     Route: 065
     Dates: start: 2016
  25. CITALOPRAM [Concomitant]
     Active Substance: CITALOPRAM HYDROBROMIDE
     Route: 065
     Dates: start: 20130418
  26. PRILOSEC [Suspect]
     Active Substance: OMEPRAZOLE MAGNESIUM
     Indication: GASTROOESOPHAGEAL REFLUX DISEASE
     Dosage: GENERIC
     Route: 065
     Dates: start: 20170106
  27. PREVACID [Suspect]
     Active Substance: LANSOPRAZOLE
     Route: 065
     Dates: start: 199701, end: 201705
  28. CIPROFLOXACIN. [Concomitant]
     Active Substance: CIPROFLOXACIN
     Indication: BACTERIAL INFECTION
     Route: 065
     Dates: start: 2008
  29. IBUPROFEN. [Concomitant]
     Active Substance: IBUPROFEN
     Indication: PAIN
     Route: 065
     Dates: start: 20110525, end: 20150108
  30. CYMBALTA [Concomitant]
     Active Substance: DULOXETINE HYDROCHLORIDE
     Route: 065
     Dates: start: 20081103
  31. PRILOSEC [Suspect]
     Active Substance: OMEPRAZOLE MAGNESIUM
     Indication: GASTROOESOPHAGEAL REFLUX DISEASE
     Route: 048
     Dates: start: 199701, end: 201705
  32. PRILOSEC OTC [Suspect]
     Active Substance: OMEPRAZOLE MAGNESIUM
     Route: 048
     Dates: start: 199701, end: 201705
  33. PROTONIX [Suspect]
     Active Substance: PANTOPRAZOLE SODIUM
     Indication: GASTROOESOPHAGEAL REFLUX DISEASE
     Dosage: GENERIC
     Route: 065
     Dates: start: 20160112, end: 20160421
  34. ASPIRIN. [Concomitant]
     Active Substance: ASPIRIN
     Indication: PAIN
     Route: 065
     Dates: start: 2015
  35. CLONAZEPAM. [Concomitant]
     Active Substance: CLONAZEPAM
     Route: 065
     Dates: start: 20090213
  36. LEVOTHYROXINE. [Concomitant]
     Active Substance: LEVOTHYROXINE
     Route: 065
     Dates: start: 20090706
  37. NEXIUM [Suspect]
     Active Substance: ESOMEPRAZOLE MAGNESIUM
     Indication: GASTROOESOPHAGEAL REFLUX DISEASE
     Route: 048
     Dates: start: 199701, end: 201705
  38. DEXILANT [Suspect]
     Active Substance: DEXLANSOPRAZOLE
     Indication: GASTROOESOPHAGEAL REFLUX DISEASE
     Route: 065
     Dates: start: 20161010, end: 20170101
  39. RANITIDINE. [Concomitant]
     Active Substance: RANITIDINE
     Route: 065
     Dates: start: 20130820, end: 20160203
  40. FERROUS SULFATE. [Concomitant]
     Active Substance: FERROUS SULFATE
     Route: 065
     Dates: start: 20081103
  41. WARFARIN SODIUM. [Concomitant]
     Active Substance: WARFARIN SODIUM
     Route: 065
     Dates: start: 20090706

REACTIONS (4)
  - Chronic kidney disease [Not Recovered/Not Resolved]
  - Acute kidney injury [Recovered/Resolved]
  - Renal failure [Unknown]
  - Renal impairment [Unknown]

NARRATIVE: CASE EVENT DATE: 20070120
